FAERS Safety Report 6003115-X (Version None)
Quarter: 2008Q4

REPORT INFORMATION
  Report Type: 
  Country: None (occurrence: None)
  Receive Date: 20081215
  Receipt Date: 20081215
  Transmission Date: 20090506
  Serious: No
  Sender: FDA-Public Use
  Company Number: None

PATIENT
  Sex: Male
  Weight: 98.2 kg

DRUGS (2)
  1. LEUCOVORIN CALCIUM [Suspect]
     Dosage: 107 MG
     Dates: end: 20081126
  2. ELOXATIN [Suspect]
     Dosage: 11 MG
     Dates: end: 20081126

REACTIONS (6)
  - CHEST DISCOMFORT [None]
  - CHEST PAIN [None]
  - FLUSHING [None]
  - HEADACHE [None]
  - INFUSION RELATED REACTION [None]
  - PARAESTHESIA [None]
